FAERS Safety Report 8052380-6 (Version None)
Quarter: 2011Q4

REPORT INFORMATION
  Report Type: 
  Country: None (occurrence: None)
  Receive Date: 20111223
  Receipt Date: 20111214
  Transmission Date: 20120403
  Serious: Yes (Hospitalization)
  Sender: FDA-Public Use
  Company Number: 2011030228

PATIENT

DRUGS (13)
  1. PRIVIGEN [Suspect]
  2. CYTOXAN [Concomitant]
  3. PRIVIGEN [Suspect]
     Indication: MULTIPLE SCLEROSIS
     Dosage: SEE IMAGE
     Route: 042
     Dates: start: 20110621
  4. PRIVIGEN [Suspect]
     Indication: NEUROMYELITIS OPTICA
     Dosage: SEE IMAGE
     Route: 042
     Dates: start: 20110621
  5. PRIVIGEN [Suspect]
     Indication: MULTIPLE SCLEROSIS
     Dosage: SEE IMAGE
     Route: 042
     Dates: start: 20111031, end: 20111031
  6. PRIVIGEN [Suspect]
     Indication: NEUROMYELITIS OPTICA
     Dosage: SEE IMAGE
     Route: 042
     Dates: start: 20111031, end: 20111031
  7. PRIVIGEN [Suspect]
     Indication: MULTIPLE SCLEROSIS
     Dosage: SEE IMAGE
     Route: 042
     Dates: start: 20110620, end: 20110624
  8. PRIVIGEN [Suspect]
     Indication: NEUROMYELITIS OPTICA
     Dosage: SEE IMAGE
     Route: 042
     Dates: start: 20110620, end: 20110624
  9. PRIVIGEN [Suspect]
     Indication: MULTIPLE SCLEROSIS
     Dosage: SEE IMAGE
     Route: 042
     Dates: start: 20110621
  10. PRIVIGEN [Suspect]
     Indication: NEUROMYELITIS OPTICA
     Dosage: SEE IMAGE
     Route: 042
     Dates: start: 20110621
  11. PRIVIGEN [Suspect]
     Indication: MULTIPLE SCLEROSIS
     Dosage: SEE IMAGE
     Route: 042
     Dates: start: 20110816, end: 20110816
  12. PRIVIGEN [Suspect]
     Indication: NEUROMYELITIS OPTICA
     Dosage: SEE IMAGE
     Route: 042
     Dates: start: 20110816, end: 20110816
  13. PRIVIGEN [Suspect]

REACTIONS (5)
  - COMA [None]
  - TREATMENT NONCOMPLIANCE [None]
  - WEIGHT DECREASED [None]
  - INAPPROPRIATE SCHEDULE OF DRUG ADMINISTRATION [None]
  - CONVULSION [None]
